FAERS Safety Report 7434703-1 (Version None)
Quarter: 2011Q2

REPORT INFORMATION
  Report Type: 
  Country: None (occurrence: None)
  Receive Date: 20110425
  Receipt Date: 20110413
  Transmission Date: 20111010
  Serious: Yes (Death, Life-Threatening)
  Sender: FDA-Public Use
  Company Number: JP-BAYER-200913041BYL

PATIENT
  Age: 63 Year
  Sex: Male

DRUGS (11)
  1. HYALEIN [Concomitant]
     Indication: KERATOCONJUNCTIVITIS SICCA
     Dosage: SUFFICEINT AMOUNT
     Route: 047
     Dates: start: 20090713, end: 20090804
  2. BARACLUDE [Concomitant]
     Indication: HEPATITIS B
     Dosage: 0.5 MG (DAILY DOSE), , ORAL
     Route: 048
     Dates: start: 20090609, end: 20091029
  3. URSO 250 [Concomitant]
     Dosage: BEFORE NEXAVAR ADMINISTRATION
     Route: 048
     Dates: end: 20091029
  4. DIGOXIN [Concomitant]
     Indication: ATRIAL FIBRILLATION
     Dosage: BEFORE NEXAVAR ADMINISTRATION
     Route: 048
     Dates: end: 20091029
  5. NEXAVAR [Suspect]
     Indication: HEPATIC NEOPLASM MALIGNANT
     Dosage: 800 MG (DAILY DOSE), , ORAL
     Route: 048
     Dates: start: 20090706, end: 20090717
  6. NEXAVAR [Suspect]
     Dosage: 400 MG (DAILY DOSE), , ORAL
     Route: 048
     Dates: start: 20090804, end: 20091006
  7. NEXAVAR [Suspect]
     Dosage: 400MG/DAY
     Route: 048
     Dates: start: 20091008, end: 20091030
  8. AMOBAN [Concomitant]
     Dosage: 7.5 MG (DAILY DOSE), , ORAL
     Route: 048
     Dates: start: 20091029, end: 20091029
  9. MUCOSTA [Concomitant]
     Indication: PROPHYLAXIS AGAINST GASTROINTESTINAL ULCER
     Dosage: BEFORE NEXAVAR ADMINISTRATION
     Route: 048
     Dates: end: 20091029
  10. KETOPROFEN [Concomitant]
     Indication: BACK PAIN
     Dosage: BEFORE NEXAVAR ADMINISTRATION
     Route: 062
     Dates: end: 20091029
  11. LASIX [Concomitant]
     Dosage: 20 MG (DAILY DOSE), , ORAL
     Route: 048
     Dates: start: 20091013, end: 20091029

REACTIONS (11)
  - HEPATIC FUNCTION ABNORMAL [None]
  - RASH [None]
  - HEPATIC NEOPLASM MALIGNANT [None]
  - HYPOPHOSPHATAEMIA [None]
  - PYREXIA [None]
  - DYSPHONIA [None]
  - JAUNDICE [None]
  - ASCITES [None]
  - HEPATIC ENCEPHALOPATHY [None]
  - BLOOD AMYLASE INCREASED [None]
  - KERATOCONJUNCTIVITIS SICCA [None]
